FAERS Safety Report 10160659 (Version 1)
Quarter: 2014Q2

REPORT INFORMATION
  Report Type: Report from Study
  Country: JP (occurrence: JP)
  Receive Date: 20140508
  Receipt Date: 20140508
  Transmission Date: 20141212
  Serious: Yes (Death, Hospitalization)
  Sender: FDA-Public Use
  Company Number: JP-CELGENEUS-087-50794-14050999

PATIENT
  Age: 61 Year
  Sex: Male
  Weight: 52 kg

DRUGS (65)
  1. VIDAZA [Suspect]
     Indication: MYELODYSPLASTIC SYNDROME
     Dosage: 50 MILLIGRAM
     Route: 058
     Dates: start: 20130115, end: 20130119
  2. VIDAZA [Suspect]
     Dosage: 50 MILLIGRAM
     Route: 058
     Dates: start: 20130214, end: 20130218
  3. VIDAZA [Suspect]
     Dosage: 50 MILLIGRAM
     Route: 058
     Dates: start: 20130314, end: 20130318
  4. FRANDOL S [Concomitant]
     Indication: PRODUCT USED FOR UNKNOWN INDICATION
     Route: 065
     Dates: end: 20130612
  5. PARIET [Concomitant]
     Indication: PRODUCT USED FOR UNKNOWN INDICATION
     Route: 065
     Dates: end: 20130522
  6. PROMAC [Concomitant]
     Indication: PRODUCT USED FOR UNKNOWN INDICATION
     Route: 065
     Dates: end: 20130522
  7. VFEND [Concomitant]
     Indication: PRODUCT USED FOR UNKNOWN INDICATION
     Route: 065
     Dates: end: 20130522
  8. SODIUM CHLORIDE [Concomitant]
     Indication: PRODUCT USED FOR UNKNOWN INDICATION
     Route: 065
     Dates: end: 20130522
  9. ZOVIRAX [Concomitant]
     Indication: PRODUCT USED FOR UNKNOWN INDICATION
     Route: 065
     Dates: end: 20130313
  10. ZOVIRAX [Concomitant]
     Route: 065
     Dates: start: 20130321, end: 20130522
  11. CRAVIT [Concomitant]
     Indication: PRODUCT USED FOR UNKNOWN INDICATION
     Route: 065
     Dates: end: 20130130
  12. CRAVIT [Concomitant]
     Route: 065
     Dates: start: 20130426, end: 20130430
  13. PROGRAF [Concomitant]
     Indication: PRODUCT USED FOR UNKNOWN INDICATION
     Route: 065
     Dates: end: 20130115
  14. PROGRAF [Concomitant]
     Route: 065
     Dates: start: 20130116, end: 20130219
  15. PROGRAF [Concomitant]
     Route: 065
     Dates: start: 20130220, end: 20130313
  16. PROGRAF [Concomitant]
     Route: 065
     Dates: start: 20130314, end: 20130430
  17. PROGRAF [Concomitant]
     Route: 065
     Dates: start: 20130501, end: 20130522
  18. MYSLEE [Concomitant]
     Indication: PRODUCT USED FOR UNKNOWN INDICATION
     Route: 065
  19. KYTRIL [Concomitant]
     Indication: PRODUCT USED FOR UNKNOWN INDICATION
     Route: 065
     Dates: start: 20130115, end: 20130119
  20. KYTRIL [Concomitant]
     Route: 065
     Dates: start: 20130214, end: 20130218
  21. KYTRIL [Concomitant]
     Route: 065
     Dates: start: 20130314, end: 20130318
  22. WHITE PETROLATUM [Concomitant]
     Indication: PRODUCT USED FOR UNKNOWN INDICATION
     Route: 065
     Dates: start: 20130124
  23. WHITE PETROLATUM [Concomitant]
     Route: 065
     Dates: start: 20130516
  24. KENKETSU VENOGLOBULIN-IH [Concomitant]
     Indication: PRODUCT USED FOR UNKNOWN INDICATION
     Route: 065
     Dates: start: 20130128, end: 20130128
  25. CALONAL [Concomitant]
     Indication: PRODUCT USED FOR UNKNOWN INDICATION
     Route: 065
     Dates: start: 20130213
  26. LOPEMIN [Concomitant]
     Indication: PRODUCT USED FOR UNKNOWN INDICATION
     Route: 065
  27. HIRUDOID [Concomitant]
     Indication: PRODUCT USED FOR UNKNOWN INDICATION
     Route: 065
     Dates: start: 20130313
  28. HIRUDOID [Concomitant]
     Route: 065
     Dates: start: 20130321
  29. VALIXA [Concomitant]
     Indication: PRODUCT USED FOR UNKNOWN INDICATION
     Route: 065
     Dates: start: 20130314, end: 20130320
  30. PREDNISOLONE [Concomitant]
     Indication: PRODUCT USED FOR UNKNOWN INDICATION
     Route: 065
     Dates: start: 20130426, end: 20130428
  31. PREDNISOLONE [Concomitant]
     Route: 065
     Dates: start: 20130429, end: 20130430
  32. ISOTONIC SODIUM CHLORIDE SOLUTION [Concomitant]
     Indication: PRODUCT USED FOR UNKNOWN INDICATION
     Route: 065
     Dates: start: 20130501, end: 20130520
  33. ISOTONIC SODIUM CHLORIDE SOLUTION [Concomitant]
     Route: 065
     Dates: start: 20130417, end: 20130611
  34. ISOTONIC SODIUM CHLORIDE SOLUTION [Concomitant]
     Route: 065
     Dates: start: 20130416, end: 20130418
  35. DENOSINE [Concomitant]
     Indication: PRODUCT USED FOR UNKNOWN INDICATION
     Route: 065
     Dates: start: 20130416, end: 20130418
  36. SOLITA-T [Concomitant]
     Indication: PRODUCT USED FOR UNKNOWN INDICATION
     Route: 065
     Dates: start: 20130417, end: 20130420
  37. PREDONINE [Concomitant]
     Indication: PRODUCT USED FOR UNKNOWN INDICATION
     Route: 065
     Dates: start: 20130417, end: 20130425
  38. PREDONINE [Concomitant]
     Route: 065
     Dates: start: 20130520, end: 20130611
  39. VENILON-I [Concomitant]
     Indication: PRODUCT USED FOR UNKNOWN INDICATION
     Route: 065
     Dates: start: 20130418, end: 20130420
  40. ADOAIR [Concomitant]
     Indication: PRODUCT USED FOR UNKNOWN INDICATION
     Route: 065
     Dates: start: 20130508
  41. CEFEPIME DIHYDROCHLORIDE HYDRATE [Concomitant]
     Indication: PRODUCT USED FOR UNKNOWN INDICATION
     Route: 065
     Dates: start: 20130416, end: 20130425
  42. CEFEPIME DIHYDROCHLORIDE HYDRATE [Concomitant]
     Route: 065
     Dates: start: 20130521, end: 20130606
  43. LASIX [Concomitant]
     Indication: PRODUCT USED FOR UNKNOWN INDICATION
     Route: 065
     Dates: start: 20130501, end: 20130608
  44. GLUCOSE [Concomitant]
     Indication: PRODUCT USED FOR UNKNOWN INDICATION
     Route: 065
     Dates: start: 20130501, end: 20130608
  45. GLUCOSE [Concomitant]
     Route: 065
     Dates: start: 20130504, end: 20130509
  46. ZOSYN [Concomitant]
     Indication: PRODUCT USED FOR UNKNOWN INDICATION
     Route: 065
     Dates: start: 20130501, end: 20130520
  47. ZOSYN [Concomitant]
     Route: 065
     Dates: start: 20130606, end: 201306
  48. KAYTWO N [Concomitant]
     Indication: PRODUCT USED FOR UNKNOWN INDICATION
     Route: 065
     Dates: start: 20130503, end: 20130509
  49. VITAMEDIN [Concomitant]
     Indication: PRODUCT USED FOR UNKNOWN INDICATION
     Route: 065
     Dates: start: 20130503, end: 20130509
  50. NONTHRON [Concomitant]
     Indication: PRODUCT USED FOR UNKNOWN INDICATION
     Route: 065
     Dates: start: 20130504, end: 20130506
  51. SOLITA-T NO.1 [Concomitant]
     Indication: PRODUCT USED FOR UNKNOWN INDICATION
     Route: 065
     Dates: start: 20130504, end: 20130509
  52. CALCICOL [Concomitant]
     Indication: PRODUCT USED FOR UNKNOWN INDICATION
     Route: 065
     Dates: start: 20130504, end: 20130509
  53. MAGLAX [Concomitant]
     Indication: PRODUCT USED FOR UNKNOWN INDICATION
     Route: 065
     Dates: start: 20130518, end: 20130524
  54. FRAGMIN [Concomitant]
     Indication: PRODUCT USED FOR UNKNOWN INDICATION
     Route: 065
     Dates: start: 20130504, end: 20130509
  55. FRAGMIN [Concomitant]
     Route: 065
     Dates: start: 20130531, end: 20130611
  56. VEEN-D [Concomitant]
     Indication: PRODUCT USED FOR UNKNOWN INDICATION
     Route: 065
     Dates: start: 20130505, end: 20130509
  57. POTASSIUM CHLORIDE [Concomitant]
     Indication: PRODUCT USED FOR UNKNOWN INDICATION
     Route: 065
     Dates: start: 20130506, end: 20130508
  58. ELNEOPA NO.2 [Concomitant]
     Indication: PRODUCT USED FOR UNKNOWN INDICATION
     Route: 065
     Dates: start: 20130510, end: 20130611
  59. MINERALIN [Concomitant]
     Indication: PRODUCT USED FOR UNKNOWN INDICATION
     Route: 065
     Dates: start: 20130510, end: 20130611
  60. LACTEC [Concomitant]
     Indication: PRODUCT USED FOR UNKNOWN INDICATION
     Route: 065
     Dates: start: 20130421, end: 20130504
  61. HUMULIN R [Concomitant]
     Indication: PRODUCT USED FOR UNKNOWN INDICATION
     Route: 065
     Dates: start: 20130512, end: 20130513
  62. FENTOS [Concomitant]
     Indication: PRODUCT USED FOR UNKNOWN INDICATION
     Route: 065
     Dates: start: 20130529, end: 20130612
  63. GASTER [Concomitant]
     Indication: PRODUCT USED FOR UNKNOWN INDICATION
     Route: 065
     Dates: start: 20130520, end: 20130611
  64. LINTON [Concomitant]
     Indication: PRODUCT USED FOR UNKNOWN INDICATION
     Route: 065
     Dates: start: 20130524, end: 20130529
  65. VANCOMYCIN HYDROCHLORIDE [Concomitant]
     Indication: PRODUCT USED FOR UNKNOWN INDICATION
     Route: 065
     Dates: start: 20130601, end: 20130611

REACTIONS (4)
  - Pneumonia [Fatal]
  - Chronic graft versus host disease [Fatal]
  - Malnutrition [Fatal]
  - Catheter site infection [Unknown]
